FAERS Safety Report 5319332-8 (Version None)
Quarter: 2007Q2

REPORT INFORMATION
  Report Type: 
  Country: None (occurrence: None)
  Receive Date: 20070508
  Receipt Date: 20070427
  Transmission Date: 20071010
  Serious: Yes (Hospitalization, Other)
  Sender: FDA-Public Use
  Company Number: IT-PFIZER INC-2007035075

PATIENT
  Age: 63 Year
  Sex: Male

DRUGS (2)
  1. SERTRALINE [Suspect]
     Indication: DEPRESSION
     Dosage: DAILY DOSE:25MG
     Route: 048
  2. TRAZODONE HCL [Interacting]
     Indication: DEPRESSION
     Dosage: DAILY DOSE:150MG

REACTIONS (12)
  - AKATHISIA [None]
  - ANXIETY [None]
  - DRUG EFFECT DECREASED [None]
  - DRUG INTERACTION [None]
  - EROSIVE DUODENITIS [None]
  - GASTRIC ULCER [None]
  - GASTRITIS [None]
  - HYPERVENTILATION [None]
  - HYPOKALAEMIA [None]
  - HYPONATRAEMIA [None]
  - PSYCHOMOTOR HYPERACTIVITY [None]
  - VOMITING [None]
